FAERS Safety Report 4637106-8 (Version None)
Quarter: 2005Q2

REPORT INFORMATION
  Report Type: 
  Country: None (occurrence: None)
  Receive Date: 20050325
  Receipt Date: 20041028
  Transmission Date: 20051028
  Serious: No
  Sender: FDA-Public Use
  Company Number: USA041082618

PATIENT
  Age: 79 Year
  Sex: Female
  Weight: 56 kg

DRUGS (2)
  1. EVISTA [Suspect]
     Indication: OSTEOPOROSIS
     Dates: end: 20041001
  2. FORTEO [Suspect]
     Indication: OSTEOPOROSIS
     Dates: start: 20041001, end: 20041001

REACTIONS (7)
  - DIARRHOEA [None]
  - DIFFICULTY IN WALKING [None]
  - INSOMNIA [None]
  - MUSCLE SPASMS [None]
  - RESTLESSNESS [None]
  - SPINAL FRACTURE [None]
  - STOMACH DISCOMFORT [None]
